FAERS Safety Report 16420008 (Version 1)
Quarter: 2019Q2

REPORT INFORMATION
  Report Type: Spontaneous
  Country: US (occurrence: US)
  Receive Date: 20190504
  Receipt Date: 20190504
  Transmission Date: 20190711
  Serious: Yes (Hospitalization)
  Sender: FDA-Public Use
  Company Number: None

PATIENT
  Age: 66 Year
  Sex: Male
  Weight: 101 kg

DRUGS (2)
  1. CISPLATIN. [Suspect]
     Active Substance: CISPLATIN
     Dates: end: 20190417
  2. 5-FLUOROURACIL (5-FU) (19893) [Suspect]
     Active Substance: FLUOROURACIL
     Dates: end: 20190421

REACTIONS (13)
  - Gastrointestinal tube insertion [None]
  - Pneumonia [None]
  - Chills [None]
  - Febrile neutropenia [None]
  - Confusional state [None]
  - Platelet count decreased [None]
  - Diarrhoea [None]
  - White blood cell count decreased [None]
  - Nausea [None]
  - Abdominal pain [None]
  - Blood creatinine increased [None]
  - Herpes simplex [None]
  - Neutrophil count decreased [None]

NARRATIVE: CASE EVENT DATE: 20190422
